FAERS Safety Report 16426447 (Version 5)
Quarter: 2019Q3

REPORT INFORMATION
  Report Type: Report from Study
  Country: CO (occurrence: CO)
  Receive Date: 20190613
  Receipt Date: 20190927
  Transmission Date: 20191004
  Serious: Yes (Life-Threatening, Hospitalization, Other)
  Sender: FDA-Public Use
  Company Number: PHHY2019CO127182

PATIENT
  Sex: Female
  Weight: 75 kg

DRUGS (3)
  1. OMEPRAZOLE. [Concomitant]
     Active Substance: OMEPRAZOLE
     Indication: PRODUCT USED FOR UNKNOWN INDICATION
     Dosage: 20 MG, UNK
     Route: 048
     Dates: start: 20190702
  2. CEFALEXIN [Concomitant]
     Active Substance: CEPHALEXIN
     Indication: PRODUCT USED FOR UNKNOWN INDICATION
     Dosage: 500 MG, Q6H
     Route: 048
     Dates: start: 20190702
  3. REVOLADE [Suspect]
     Active Substance: ELTROMBOPAG
     Indication: IMMUNE THROMBOCYTOPENIC PURPURA
     Dosage: 50 MG, QD
     Route: 048
     Dates: start: 20190502, end: 20190702

REACTIONS (13)
  - Seizure [Recovered/Resolved]
  - Dyspnoea [Unknown]
  - Pain [Unknown]
  - Infection [Recovered/Resolved]
  - Spleen disorder [Unknown]
  - Hypoacusis [Unknown]
  - Mouth haemorrhage [Recovered/Resolved]
  - Transfusion reaction [Recovered/Resolved]
  - Pyrexia [Recovered/Resolved]
  - Headache [Unknown]
  - Platelet count decreased [Recovering/Resolving]
  - Haematoma [Recovered/Resolved]
  - Splenitis [Unknown]
